FAERS Safety Report 6159310-2 (Version None)
Quarter: 2009Q2

REPORT INFORMATION
  Report Type: 
  Country: None (occurrence: None)
  Receive Date: 20090417
  Receipt Date: 20090407
  Transmission Date: 20091009
  Serious: Yes (Hospitalization, Other)
  Sender: FDA-Public Use
  Company Number: FR-SANOFI-SYNTHELABO-A02200900963

PATIENT
  Sex: Male

DRUGS (8)
  1. CARDENSIEL [Suspect]
     Indication: DRUG USE FOR UNKNOWN INDICATION
     Dosage: UNK
     Route: 048
  2. LIPANTHYL [Suspect]
     Indication: HYPERCHOLESTEROLAEMIA
     Dosage: UNK
     Route: 048
  3. ZYLORIC [Suspect]
     Indication: DRUG USE FOR UNKNOWN INDICATION
     Dosage: UNK
     Route: 048
  4. MEDIATOR [Suspect]
     Indication: DIABETES MELLITUS
     Dosage: 300 OR 450 MG DAILY
     Route: 048
  5. LASIX [Suspect]
     Indication: DRUG USE FOR UNKNOWN INDICATION
     Dosage: UNK
     Route: 048
  6. TRIATEC [Suspect]
     Indication: DRUG USE FOR UNKNOWN INDICATION
     Dosage: UNK
     Route: 048
  7. KARDEGIC [Suspect]
     Indication: DRUG USE FOR UNKNOWN INDICATION
     Dosage: UNK
     Route: 048
  8. PLAVIX [Suspect]
     Indication: CORONARY ARTERY DISEASE
     Dosage: UNK
     Route: 048

REACTIONS (4)
  - AORTIC VALVE DISEASE [None]
  - MITRAL VALVE INCOMPETENCE [None]
  - PULMONARY ARTERIAL HYPERTENSION [None]
  - TRICUSPID VALVE INCOMPETENCE [None]
